FAERS Safety Report 18538922 (Version 2)
Quarter: 2021Q1

REPORT INFORMATION
  Report Type: Report from Study
  Country: BR (occurrence: BR)
  Receive Date: 20201124
  Receipt Date: 20210108
  Transmission Date: 20210419
  Serious: Yes (Other)
  Sender: FDA-Public Use
  Company Number: NVSC2020BR306059

PATIENT
  Age: 51 Year
  Sex: Female

DRUGS (4)
  1. KISQALI [Suspect]
     Active Substance: RIBOCICLIB
     Indication: BREAST CANCER FEMALE
     Dosage: UNK
     Route: 065
     Dates: start: 20200922
  2. KISQALI [Suspect]
     Active Substance: RIBOCICLIB
     Dosage: UNK
     Route: 065
     Dates: start: 20201020
  3. LETROZOLE. [Concomitant]
     Active Substance: LETROZOLE
     Indication: PRODUCT USED FOR UNKNOWN INDICATION
     Dosage: UNK
     Route: 065
  4. FEMARA [Suspect]
     Active Substance: LETROZOLE
     Indication: PRODUCT USED FOR UNKNOWN INDICATION
     Dosage: UNK, (MORNING )
     Route: 065
     Dates: start: 202009

REACTIONS (11)
  - Full blood count decreased [Recovered/Resolved]
  - Spinal fracture [Not Recovered/Not Resolved]
  - Insomnia [Not Recovered/Not Resolved]
  - Restlessness [Unknown]
  - Mood swings [Unknown]
  - Product label issue [Unknown]
  - Product packaging quantity issue [Unknown]
  - Crying [Unknown]
  - Spinal cord injury [Not Recovered/Not Resolved]
  - Decreased immune responsiveness [Recovered/Resolved]
  - Affect lability [Unknown]

NARRATIVE: CASE EVENT DATE: 202009
